FAERS Safety Report 6283042-3 (Version None)
Quarter: 2009Q3

REPORT INFORMATION
  Report Type: 
  Country: None (occurrence: None)
  Receive Date: 20090724
  Receipt Date: 20090714
  Transmission Date: 20100115
  Serious: Yes (Other)
  Sender: FDA-Public Use
  Company Number: NL-TEVA-202437ISR

PATIENT
  Age: 45 Year
  Sex: Male
  Weight: 78 kg

DRUGS (5)
  1. LITHIUM CARBONATE [Suspect]
     Indication: INSOMNIA
     Dates: start: 20080725
  2. ARIPIPRAZOLE [Suspect]
     Indication: INSOMNIA
     Dates: start: 20080725
  3. OLANZAPINE [Suspect]
     Indication: PSYCHOTIC DISORDER
     Dates: start: 19970206
  4. RISPERIDONE [Suspect]
     Indication: INSOMNIA
     Dates: start: 20080725
  5. GINKGO BILOBA [Concomitant]
     Dates: start: 20090115

REACTIONS (5)
  - AGITATION [None]
  - HEADACHE [None]
  - INSOMNIA [None]
  - RESTLESSNESS [None]
  - TYPE 2 DIABETES MELLITUS [None]
